FAERS Safety Report 20852263 (Version 1)
Quarter: 2022Q2

REPORT INFORMATION
  Report Type: Report from Study
  Country: DE (occurrence: DE)
  Receive Date: 20220520
  Receipt Date: 20220520
  Transmission Date: 20220720
  Serious: Yes (Hospitalization)
  Sender: FDA-Public Use
  Company Number: DE-SUN PHARMACEUTICAL INDUSTRIES LTD-2022RR-337434

PATIENT
  Age: 77 Year
  Sex: Male
  Weight: 113 kg

DRUGS (7)
  1. TILDRAKIZUMAB [Suspect]
     Active Substance: TILDRAKIZUMAB
     Indication: Psoriasis
     Dosage: 100, UNK
     Route: 058
     Dates: start: 20191129
  2. Ramipril plus 5/25 [Concomitant]
     Indication: Product used for unknown indication
     Dosage: (1-0-0) (1 DOSAGE FORMS, 1 IN 1 D)
     Route: 048
     Dates: start: 2000
  3. Nitrendipin 10 [Concomitant]
     Indication: Product used for unknown indication
     Dosage: 1 DOSAGE FORM, BID (1-0-1)
     Route: 048
     Dates: start: 2000
  4. RAMIPRIL [Concomitant]
     Active Substance: RAMIPRIL
     Indication: Product used for unknown indication
     Dosage: (0-0-1) (1 DOSAGE FORMS, 1 IN 1 D)
     Route: 048
     Dates: start: 2000
  5. TORSEMIDE [Concomitant]
     Active Substance: TORSEMIDE
     Indication: Product used for unknown indication
     Dosage: (1-0-0) (1 DOSAGE FORM, 1 IN 1 D)
     Route: 048
     Dates: start: 2000
  6. Simvabeta 10 [Concomitant]
     Indication: Product used for unknown indication
     Dosage: (0-0-1) (1 DOSAGE FORM, 1 IN 1 D)
     Route: 048
     Dates: start: 2000
  7. ELIQUIS [Concomitant]
     Active Substance: APIXABAN
     Indication: Product used for unknown indication
     Dosage: (1-0-1) (1 DOSAGE FORMS, 2 IN 1 D)
     Route: 048
     Dates: start: 2016

REACTIONS (3)
  - Hypochromic anaemia [Recovered/Resolved]
  - Dyspnoea [Recovered/Resolved]
  - Melaena [Recovered/Resolved]

NARRATIVE: CASE EVENT DATE: 20220415
